FAERS Safety Report 9374572 (Version 1)
Quarter: 2013Q2

REPORT INFORMATION
  Report Type: Report from Study
  Country: CA (occurrence: CA)
  Receive Date: 20130628
  Receipt Date: 20130628
  Transmission Date: 20140414
  Serious: Yes (Life-Threatening, Hospitalization)
  Sender: FDA-Public Use
  Company Number: CA-JNJFOC-20130614429

PATIENT
  Sex: Female
  Weight: 58.97 kg

DRUGS (2)
  1. REMICADE [Suspect]
     Indication: COLITIS ULCERATIVE
     Dosage: STOPPED AFTER 4-5 DOSES
     Route: 042
     Dates: start: 2005
  2. REMICADE [Suspect]
     Indication: CROHN^S DISEASE
     Dosage: STOPPED AFTER 4-5 DOSES
     Route: 042
     Dates: start: 2005

REACTIONS (2)
  - Cardiac arrest [Unknown]
  - Throat tightness [Unknown]
